FAERS Safety Report 9054915 (Version 1)
Quarter: 2013Q1

REPORT INFORMATION
  Report Type: Spontaneous
  Country: BR (occurrence: BR)
  Receive Date: 20130208
  Receipt Date: 20130208
  Transmission Date: 20140127
  Serious: Yes (Disabling, Other)
  Sender: FDA-Public Use
  Company Number: BR-ABBOTT-13P-020-1047081-00

PATIENT
  Sex: Female
  Weight: 53 kg

DRUGS (11)
  1. HUMIRA [Suspect]
     Indication: RHEUMATOID ARTHRITIS
     Route: 058
     Dates: start: 20120919
  2. METICORTEN [Concomitant]
     Indication: RHEUMATOID ARTHRITIS
     Route: 048
     Dates: start: 2011
  3. OMEPRAZOLE [Concomitant]
     Indication: GASTRIC DISORDER
     Dosage: 2 TABLETS DAILY
     Route: 048
     Dates: start: 2011
  4. DIURISA [Concomitant]
     Indication: DIURETIC THERAPY
     Route: 048
     Dates: start: 2011
  5. PROPRANOLOL [Concomitant]
     Indication: HYPERTENSION
     Dosage: 2 TABLETS DAILY
     Route: 048
  6. DIAZEPAM [Concomitant]
     Indication: CONVULSION PROPHYLAXIS
     Dosage: 2 TABLETS DAILY
     Route: 048
     Dates: start: 2003
  7. FLUOXETINE [Concomitant]
     Indication: ANTIDEPRESSANT THERAPY
     Route: 048
     Dates: start: 2011
  8. CALCIUM CARBONATE / CALCIFEROL (MIRACAL) [Concomitant]
     Indication: OSTEOPOROSIS
     Route: 048
     Dates: start: 2011
  9. ALENDRONATE SODIUM [Concomitant]
     Indication: OSTEOPOROSIS
     Route: 048
     Dates: start: 2011
  10. ENALAPRIL [Concomitant]
     Indication: HYPERTENSION
     Dosage: 2 TABLETS
     Route: 048
     Dates: start: 2011
  11. LOSARTAN [Concomitant]
     Indication: HYPERTENSION
     Route: 048
     Dates: start: 2011

REACTIONS (2)
  - Abasia [Unknown]
  - Arthralgia [Not Recovered/Not Resolved]
